FAERS Safety Report 6196954-6 (Version None)
Quarter: 2009Q2

REPORT INFORMATION
  Report Type: 
  Country: None (occurrence: None)
  Receive Date: 20090520
  Receipt Date: 20090512
  Transmission Date: 20091009
  Serious: No
  Sender: FDA-Public Use
  Company Number: US-B.I. PHARMACEUTICALS,INC./RIDGEFIELD-2009-BP-05952BP

PATIENT
  Sex: Male

DRUGS (3)
  1. FLOMAX [Suspect]
     Dosage: .4MG
     Route: 048
     Dates: start: 20081001, end: 20090201
  2. FLOMAX [Suspect]
     Route: 048
     Dates: start: 20090201
  3. CHLORTHALIDONE [Concomitant]
     Indication: HYPERTENSION

REACTIONS (4)
  - LIP SWELLING [None]
  - RASH GENERALISED [None]
  - SYNCOPE [None]
  - THERAPY REGIMEN CHANGED [None]
